FAERS Safety Report 10064782 (Version 1)
Quarter: 2014Q2

REPORT INFORMATION
  Report Type: Spontaneous
  Country: BR (occurrence: BR)
  Receive Date: 20140408
  Receipt Date: 20140408
  Transmission Date: 20141212
  Serious: Yes (Other)
  Sender: FDA-Public Use
  Company Number: BR-BAYER-2014-050267

PATIENT
  Sex: 0

DRUGS (1)
  1. NEXAVAR [Suspect]
     Route: 048

REACTIONS (2)
  - Hepatocellular carcinoma [None]
  - Hepatitis acute [None]
